FAERS Safety Report 24717304 (Version 2)
Quarter: 2024Q4

REPORT INFORMATION
  Report Type: Report from Study
  Country: PT (occurrence: PT)
  Receive Date: 20241210
  Receipt Date: 20241220
  Transmission Date: 20250114
  Serious: Yes (Hospitalization)
  Sender: ABBVIE
  Company Number: PT-ABBVIE-6038725

PATIENT
  Age: 63 Year
  Sex: Male

DRUGS (14)
  1. CARBIDOPA\LEVODOPA [Suspect]
     Active Substance: CARBIDOPA\LEVODOPA
     Indication: Parkinson^s disease
     Dosage: 20 MG + 5 MG, MORN:14.1CC;MAINTE:3,6 CC/H;EXTRA:1,5 CC
     Route: 050
  2. CARBIDOPA\LEVODOPA [Suspect]
     Active Substance: CARBIDOPA\LEVODOPA
     Dosage: 20 MG + 5 MG, MORNIN:12CC;MAINT:3,3 CC/H;EXTRA:1,5 CC
     Route: 050
     Dates: start: 20210826
  3. TRAZODONE [Concomitant]
     Active Substance: TRAZODONE HYDROCHLORIDE
     Indication: Product used for unknown indication
     Dosage: 1 TABLET
     Route: 048
  4. TRAZODONE [Concomitant]
     Active Substance: TRAZODONE HYDROCHLORIDE
     Indication: Product used for unknown indication
     Dosage: 1 TABLET, FREQUENCY TEXT: AT BEDTIME?START DATE TEXT: BEFORE DUODOPA?FORM STRENGTH: 100 MG
     Route: 048
  5. OLODATEROL HYDROCHLORIDE\TIOTROPIUM BROMIDE MONOHYDRATE [Concomitant]
     Active Substance: OLODATEROL HYDROCHLORIDE\TIOTROPIUM BROMIDE MONOHYDRATE
     Indication: Product used for unknown indication
     Dosage: 2.5+2.5
     Route: 055
  6. CLONAZEPAM [Concomitant]
     Active Substance: CLONAZEPAM
     Indication: Product used for unknown indication
     Dosage: 1 TABLET
     Route: 048
  7. CLONAZEPAM [Concomitant]
     Active Substance: CLONAZEPAM
     Indication: Product used for unknown indication
     Dosage: 1 TABLET, FORM STRENGTH: 0.5 MG, FREQUENCY TEXT: AT BEDTIME, START DATE TEXT: BEFORE DUODOPA,
     Route: 048
  8. BUPROPION [Concomitant]
     Active Substance: BUPROPION
     Indication: Product used for unknown indication
     Dosage: 1 TABLET, FORM STRENGTH: 300 MG, FREQUENCY TEXT: IN THE MORNING, START DATE TEXT: BEFORE DUODOPA,
     Route: 048
  9. BENSERAZIDE HYDROCHLORIDE\LEVODOPA [Concomitant]
     Active Substance: BENSERAZIDE HYDROCHLORIDE\LEVODOPA
     Indication: Product used for unknown indication
     Dosage: 2 TABLET, FREQUENCY TEXT: AT BEDTIME, START DATE TEXT: BEFORE DUODOPA,
     Route: 048
  10. BUDESONIDE [Concomitant]
     Active Substance: BUDESONIDE
     Indication: Product used for unknown indication
     Route: 055
  11. CLOZAPINE [Concomitant]
     Active Substance: CLOZAPINE
     Indication: Product used for unknown indication
     Dosage: 2 TABLET, FORM STRENGTH: 100 MG, FREQUENCY TEXT: 1/2 IN MORNING+ LUNCH AND 1 AT BEDTIME, START DA...
     Route: 048
  12. ALPRAZOLAM [Concomitant]
     Active Substance: ALPRAZOLAM
     Indication: Product used for unknown indication
     Dosage: FORM STRENGTH: 1 MG, FREQUENCY TEXT: SOS, START DATE TEXT: BEFORE DUODOPA
     Route: 048
  13. SERTRALINE [Concomitant]
     Active Substance: SERTRALINE HYDROCHLORIDE
     Indication: Product used for unknown indication
     Dosage: 2 TABLET, FORM STRENGTH: 50 MG, FREQUENCY TEXT: IN THE MORNING, START DATE TEXT: BEFORE DUODOPA
     Route: 048
  14. CYANOCOBALAMIN;PYRIDOXINE;THIAMINE [Concomitant]
     Indication: Product used for unknown indication
     Dosage: 1 TABLET, START DATE TEXT: AFTER DUODOPA
     Route: 048

REACTIONS (1)
  - Respiratory tract infection [Not Recovered/Not Resolved]

NARRATIVE: CASE EVENT DATE: 20241201
